FAERS Safety Report 4333156-X (Version None)
Quarter: 2004Q2

REPORT INFORMATION
  Report Type: 
  Country: None (occurrence: None)
  Receive Date: 20040405
  Receipt Date: 20040405
  Transmission Date: 20050107
  Serious: Yes (Disabling)
  Sender: FDA-Public Use
  Company Number: None

PATIENT
  Age: 34 Year
  Sex: Male
  Weight: 76.2043 kg

DRUGS (2)
  1. PROTONIX [Suspect]
     Indication: DYSPEPSIA
     Dosage: 40 MG DAILY ORAL
     Route: 048
     Dates: start: 20030508, end: 20030606
  2. PROTONIX [Suspect]
     Indication: GASTROOESOPHAGEAL REFLUX DISEASE
     Dosage: 40 MG DAILY ORAL
     Route: 048
     Dates: start: 20030508, end: 20030606

REACTIONS (17)
  - ANXIETY [None]
  - CHILLS [None]
  - DEPRESSION [None]
  - DIZZINESS [None]
  - FATIGUE [None]
  - FEELING ABNORMAL [None]
  - FEELING HOT AND COLD [None]
  - FLUSHING [None]
  - INFLUENZA LIKE ILLNESS [None]
  - MALAISE [None]
  - MIGRAINE [None]
  - NAUSEA [None]
  - PAIN [None]
  - PYREXIA [None]
  - SENSATION OF HEAVINESS [None]
  - SENSATION OF PRESSURE IN EAR [None]
  - VISUAL DISTURBANCE [None]
